FAERS Safety Report 5801348-6 (Version None)
Quarter: 2008Q3

REPORT INFORMATION
  Report Type: 
  Country: None (occurrence: None)
  Receive Date: 20080707
  Receipt Date: 20080707
  Transmission Date: 20090109
  Serious: Yes (Death, Life-Threatening, Hospitalization, Other)
  Sender: FDA-Public Use
  Company Number: None

PATIENT
  Age: 65 Year
  Sex: Male
  Weight: 90.7194 kg

DRUGS (3)
  1. HEPARIN [Suspect]
     Indication: PULMONARY THROMBOSIS
     Dosage: 1000 HOURLY IV BOLUS
     Route: 040
     Dates: start: 20051107, end: 20060309
  2. HEPARIN [Suspect]
     Dosage: 10,000 HOURLY IV BOLUS
     Route: 040
     Dates: start: 20051212, end: 20060309
  3. HEPARIN [Concomitant]

REACTIONS (16)
  - ARTERIAL THROMBOSIS [None]
  - CEREBRAL HAEMORRHAGE [None]
  - CEREBROVASCULAR ACCIDENT [None]
  - DEEP VEIN THROMBOSIS [None]
  - EPISTAXIS [None]
  - GANGRENE [None]
  - GASTROINTESTINAL HAEMORRHAGE [None]
  - HEMIPARESIS [None]
  - HEPATIC FAILURE [None]
  - JAUNDICE [None]
  - LEG AMPUTATION [None]
  - MYOCARDIAL INFARCTION [None]
  - PLATELET COUNT DECREASED [None]
  - RENAL FAILURE [None]
  - VISUAL ACUITY REDUCED [None]
  - WEIGHT DECREASED [None]
